FAERS Safety Report 5004219-0 (Version None)
Quarter: 2006Q2

REPORT INFORMATION
  Report Type: 
  Country: None (occurrence: None)
  Receive Date: 20060517
  Receipt Date: 20060505
  Transmission Date: 20061013
  Serious: Yes (Life-Threatening, Other)
  Sender: FDA-Public Use
  Company Number: US-BRISTOL-MYERS SQUIBB COMPANY-13370143

PATIENT
  Age: 74 Year
  Sex: Male

DRUGS (1)
  1. DEFINITY [Suspect]
     Route: 040
     Dates: start: 20060505, end: 20060505

REACTIONS (5)
  - ABDOMINAL PAIN UPPER [None]
  - BLOOD PRESSURE FLUCTUATION [None]
  - HOT FLUSH [None]
  - PARAESTHESIA [None]
  - THROAT TIGHTNESS [None]
